FAERS Safety Report 21298076 (Version 1)
Quarter: 2022Q3

REPORT INFORMATION
  Report Type: Spontaneous
  Country: US (occurrence: None)
  Receive Date: 20220902
  Receipt Date: 20220902
  Transmission Date: 20221026
  Serious: No
  Sender: FDA-Public Use
  Company Number: None

PATIENT
  Age: 67 Year
  Sex: Male
  Weight: 98.43 kg

DRUGS (22)
  1. GLEOSTINE [Suspect]
     Active Substance: LOMUSTINE
     Indication: Brain neoplasm malignant
     Dosage: FREQUENCY : AS DIRECTED;?
     Route: 048
     Dates: start: 202207
  2. TEMOZOLOMIDE [Suspect]
     Active Substance: TEMOZOLOMIDE
     Indication: Brain neoplasm malignant
     Dosage: FREQUENCY : DAILY;?
     Route: 048
     Dates: start: 202201
  3. ACETAMINOPHEN [Concomitant]
     Active Substance: ACETAMINOPHEN
  4. ATIVAN [Concomitant]
     Active Substance: LORAZEPAM
  5. AVASTIN [Concomitant]
     Active Substance: BEVACIZUMAB
  6. DEXAMETHASONE [Concomitant]
     Active Substance: DEXAMETHASONE
  7. DOXYCYCLINE [Concomitant]
     Active Substance: DOXYCYCLINE
  8. DULOXETINE [Concomitant]
     Active Substance: DULOXETINE
  9. HUMALOG [Concomitant]
     Active Substance: INSULIN LISPRO
  10. KEPPRA [Concomitant]
     Active Substance: LEVETIRACETAM
  11. LIPITOR [Concomitant]
     Active Substance: ATORVASTATIN CALCIUM
  12. METFORMIN [Concomitant]
     Active Substance: METFORMIN HYDROCHLORIDE
  13. MIRALAX [Concomitant]
     Active Substance: POLYETHYLENE GLYCOL 3350
  14. VITAMINS [Concomitant]
     Active Substance: VITAMINS
  15. NORVASC [Concomitant]
     Active Substance: AMLODIPINE BESYLATE
  16. OXYBUTYNIN [Concomitant]
     Active Substance: OXYBUTYNIN
  17. PANTOPRAZOLE [Concomitant]
     Active Substance: PANTOPRAZOLE
  18. PIOGLITAZONE [Concomitant]
     Active Substance: PIOGLITAZONE
  19. VIMPAT [Concomitant]
     Active Substance: LACOSAMIDE
  20. XARELTO [Concomitant]
     Active Substance: RIVAROXABAN
  21. ZOFRAN [Concomitant]
     Active Substance: ONDANSETRON HYDROCHLORIDE
  22. ETOPOSIDE [Concomitant]
     Active Substance: ETOPOSIDE

REACTIONS (1)
  - Hospice care [None]
